FAERS Safety Report 7197250-0 (Version None)
Quarter: 2010Q4

REPORT INFORMATION
  Report Type: 
  Country: None (occurrence: None)
  Receive Date: 20101224
  Receipt Date: 20101222
  Transmission Date: 20110411
  Serious: Yes (Death, Hospitalization)
  Sender: FDA-Public Use
  Company Number: PHHO2010EG17640

PATIENT
  Sex: Male
  Weight: 52 kg

DRUGS (3)
  1. DESFERAL [Suspect]
     Indication: THALASSAEMIA BETA
     Dosage: UNK
     Dates: start: 20100520, end: 20101115
  2. FOLIC ACID [Concomitant]
  3. INSULIN [Concomitant]

REACTIONS (7)
  - ALTERED STATE OF CONSCIOUSNESS [None]
  - CARDIAC ARREST [None]
  - CONCOMITANT DISEASE PROGRESSION [None]
  - DYSPNOEA [None]
  - FACE OEDEMA [None]
  - GRAND MAL CONVULSION [None]
  - MENINGITIS [None]
